FAERS Safety Report 16941500 (Version 5)
Quarter: 2019Q4

REPORT INFORMATION
  Report Type: Report from Study
  Country: US (occurrence: US)
  Receive Date: 20191021
  Receipt Date: 20191227
  Transmission Date: 20200122
  Serious: Yes (Life-Threatening, Hospitalization)
  Sender: FDA-Public Use
  Company Number: US-OTSUKA-2018_037877

PATIENT
  Age: 54 Year
  Sex: Male

DRUGS (3)
  1. TOLVAPTAN [Interacting]
     Active Substance: TOLVAPTAN
     Dosage: 15 MG, UNK
     Route: 065
     Dates: start: 20181122, end: 20191007
  2. FLU [Interacting]
     Active Substance: INFLUENZA VIRUS VACCINE
     Indication: ANTIVIRAL PROPHYLAXIS
     Dosage: UNK
     Route: 065
  3. TOLVAPTAN [Suspect]
     Active Substance: TOLVAPTAN
     Indication: PRODUCT USED FOR UNKNOWN INDICATION
     Dosage: 45 MG, UNK
     Route: 065
     Dates: start: 20181122, end: 20191007

REACTIONS (10)
  - Ventricular extrasystoles [Unknown]
  - Dry mouth [Not Recovered/Not Resolved]
  - Drug interaction [Unknown]
  - Polydipsia [Unknown]
  - Polyuria [Not Recovered/Not Resolved]
  - Acute kidney injury [Unknown]
  - Troponin increased [Unknown]
  - Hypokalaemia [Unknown]
  - Hyponatraemia [Unknown]
  - Thirst [Not Recovered/Not Resolved]

NARRATIVE: CASE EVENT DATE: 20181124
